FAERS Safety Report 8566273-9 (Version None)
Quarter: 2012Q3

REPORT INFORMATION
  Report Type: 
  Country: None (occurrence: None)
  Receive Date: 20120803
  Receipt Date: 20111026
  Transmission Date: 20120928
  Serious: No
  Sender: FDA-Public Use
  Company Number: US-ABBOTT-11P-163-0869321-00

PATIENT
  Sex: Female
  Weight: 70.37 kg

DRUGS (8)
  1. LIVALO [Concomitant]
     Indication: BLOOD CHOLESTEROL
  2. NIASPAN [Suspect]
     Indication: BLOOD CHOLESTEROL
     Dates: start: 20080101, end: 20080101
  3. LEVOTHYROXINE SODIUM [Concomitant]
     Indication: HYPOTHYROIDISM
  4. EYE DROPS [Concomitant]
     Indication: EYE PRURITUS
  5. NIASPAN [Suspect]
     Dates: start: 20080101
  6. DEXILANT [Concomitant]
     Indication: GASTROOESOPHAGEAL REFLUX DISEASE
  7. ALLEGRA [Concomitant]
     Indication: RHINITIS
  8. ALBUTEROL [Concomitant]
     Indication: ASTHMA

REACTIONS (1)
  - OEDEMA PERIPHERAL [None]
